FAERS Safety Report 10070224 (Version 1)
Quarter: 2014Q2

REPORT INFORMATION
  Report Type: Spontaneous
  Country: US (occurrence: None)
  Receive Date: 20140408
  Receipt Date: 20140408
  Transmission Date: 20141212
  Serious: Yes (Other)
  Sender: FDA-Public Use
  Company Number: MCN 20140168

PATIENT
  Age: 60 Year
  Sex: Male

DRUGS (1)
  1. HYDRALAZINE HCL INJECTION, USP (0901-25) 20 MG/ML [Suspect]
     Indication: PRODUCT USED FOR UNKNOWN INDICATION

REACTIONS (2)
  - Lupus-like syndrome [None]
  - Pericarditis [None]
